FAERS Safety Report 6919438-3 (Version None)
Quarter: 2010Q3

REPORT INFORMATION
  Report Type: 
  Country: None (occurrence: None)
  Receive Date: 20100811
  Receipt Date: 20100803
  Transmission Date: 20110219
  Serious: Yes (Hospitalization, Other)
  Sender: FDA-Public Use
  Company Number: B0658883A

PATIENT
  Sex: Male

DRUGS (5)
  1. CLAVAMOX [Suspect]
     Indication: OTITIS MEDIA ACUTE
     Dosage: 1.5MG PER DAY
     Route: 048
     Dates: start: 20100524, end: 20100530
  2. LAC B [Concomitant]
     Indication: OTITIS MEDIA ACUTE
     Dosage: 1G PER DAY
     Route: 048
     Dates: start: 20100524, end: 20100530
  3. UNKNOWN [Concomitant]
     Indication: OTITIS MEDIA ACUTE
     Dosage: .6G PER DAY
     Route: 048
     Dates: start: 20100524, end: 20100530
  4. UNKNOWN MEDICATION [Concomitant]
     Indication: OTITIS MEDIA ACUTE
     Dosage: 12DROP PER DAY
     Dates: start: 20100524, end: 20100530
  5. MUCODYNE [Concomitant]
     Indication: OTITIS MEDIA ACUTE
     Dosage: .6G PER DAY
     Route: 048
     Dates: start: 20100524, end: 20100530

REACTIONS (2)
  - ERYTHEMA MULTIFORME [None]
  - PYREXIA [None]
